FAERS Safety Report 18376277 (Version 1)
Quarter: 2020Q4

REPORT INFORMATION
  Report Type: Report from Study
  Country: BR (occurrence: BR)
  Receive Date: 20201013
  Receipt Date: 20201013
  Transmission Date: 20210114
  Serious: Yes (Other)
  Sender: FDA-Public Use
  Company Number: PHHY2019BR030275

PATIENT
  Age: 49 Year
  Sex: Female
  Weight: 54 kg

DRUGS (4)
  1. COSENTYX [Suspect]
     Active Substance: SECUKINUMAB
     Indication: PSORIASIS
     Dosage: 300 MG, QMO
     Route: 065
     Dates: start: 201812
  2. COSENTYX [Suspect]
     Active Substance: SECUKINUMAB
     Indication: RHEUMATOID ARTHRITIS
     Dosage: 300 MG, QW
     Route: 058
     Dates: start: 20181217, end: 20190114
  3. LEFLUNOMIDE. [Concomitant]
     Active Substance: LEFLUNOMIDE
     Indication: PRODUCT USED FOR UNKNOWN INDICATION
     Dosage: 1 DF, QD
     Route: 065
  4. COSENTYX [Suspect]
     Active Substance: SECUKINUMAB
     Dosage: 300 MG, QMO
     Route: 065
     Dates: start: 201812

REACTIONS (22)
  - Haemorrhage [Unknown]
  - Drug ineffective [Not Recovered/Not Resolved]
  - Pruritus [Not Recovered/Not Resolved]
  - Weight decreased [Not Recovered/Not Resolved]
  - Nail psoriasis [Not Recovered/Not Resolved]
  - Productive cough [Not Recovered/Not Resolved]
  - Speech disorder [Not Recovered/Not Resolved]
  - Hypersensitivity [Not Recovered/Not Resolved]
  - Skin disorder [Unknown]
  - Malaise [Unknown]
  - Product use in unapproved indication [Not Recovered/Not Resolved]
  - Finger deformity [Recovered/Resolved]
  - Psoriasis [Not Recovered/Not Resolved]
  - Ear disorder [Not Recovered/Not Resolved]
  - Abscess [Recovered/Resolved]
  - Immune system disorder [Not Recovered/Not Resolved]
  - Obstructive airways disorder [Not Recovered/Not Resolved]
  - Peripheral swelling [Not Recovered/Not Resolved]
  - Pain [Unknown]
  - Vomiting [Unknown]
  - Wound [Unknown]
  - Stress [Unknown]

NARRATIVE: CASE EVENT DATE: 201812
